FAERS Safety Report 11146988 (Version 1)
Quarter: 2015Q2

REPORT INFORMATION
  Report Type: Spontaneous
  Country: US (occurrence: US)
  Receive Date: 20150528
  Receipt Date: 20150528
  Transmission Date: 20150821
  Serious: Yes (Other)
  Sender: FDA-Public Use
  Company Number: US-ABBVIE-15P-163-1396948-00

PATIENT
  Age: 25 Year
  Sex: Female

DRUGS (2)
  1. SYNTHROID [Suspect]
     Active Substance: LEVOTHYROXINE SODIUM
     Indication: PRODUCT USED FOR UNKNOWN INDICATION
     Route: 065
     Dates: start: 2005
  2. ADDERALL [Concomitant]
     Active Substance: AMPHETAMINE ASPARTATE\AMPHETAMINE SULFATE\DEXTROAMPHETAMINE SACCHARATE\DEXTROAMPHETAMINE SULFATE
     Indication: ATTENTION DEFICIT/HYPERACTIVITY DISORDER

REACTIONS (25)
  - Paraesthesia [Unknown]
  - Irritability [Unknown]
  - Loss of consciousness [Unknown]
  - Nausea [Unknown]
  - Cognitive disorder [Unknown]
  - Vision blurred [Unknown]
  - Tinnitus [Unknown]
  - Acne [Unknown]
  - Mental impairment [Unknown]
  - Syncope [Unknown]
  - Seizure [Unknown]
  - Myoclonus [Unknown]
  - Increased appetite [Unknown]
  - Fall [Unknown]
  - Visual impairment [Unknown]
  - Insomnia [Unknown]
  - Feeling hot [Unknown]
  - Pituitary tumour [Unknown]
  - Epilepsy [Unknown]
  - Feeling abnormal [Unknown]
  - Memory impairment [Unknown]
  - Headache [Unknown]
  - Dizziness [Unknown]
  - Hearing impaired [Unknown]
  - Vomiting [Unknown]
